FAERS Safety Report 9816229 (Version 2)
Quarter: 2014Q1

REPORT INFORMATION
  Report Type: Spontaneous
  Country: US (occurrence: US)
  Receive Date: 20140114
  Receipt Date: 20140312
  Transmission Date: 20141002
  Serious: Yes (Death)
  Sender: FDA-Public Use
  Company Number: US-AMGEN-USASP2014001729

PATIENT
  Age: 84 Year
  Sex: Female
  Weight: 51.3 kg

DRUGS (1)
  1. PROLIA [Suspect]
     Indication: OSTEOPOROSIS
     Dosage: 60 MG, Q6MO
     Route: 058

REACTIONS (3)
  - Myocardial infarction [Fatal]
  - Circulatory collapse [Fatal]
  - Cardiac arrest [Fatal]
